FAERS Safety Report 4850902-7 (Version None)
Quarter: 2005Q4

REPORT INFORMATION
  Report Type: 
  Country: None (occurrence: None)
  Receive Date: 20051212
  Receipt Date: 20051130
  Transmission Date: 20060501
  Serious: Yes (Other)
  Sender: FDA-Public Use
  Company Number: IT-GLAXOSMITHKLINE-B0402158A

PATIENT
  Age: 35 Year
  Sex: Female

DRUGS (5)
  1. LAMIVUDINE [Suspect]
     Indication: HIV INFECTION
     Dosage: 150MG TWICE PER DAY
     Route: 065
     Dates: start: 19970701, end: 20000401
  2. STAVUDINE [Suspect]
     Indication: HIV INFECTION
     Dosage: 30MG TWICE PER DAY
     Route: 065
     Dates: start: 19970701, end: 20000401
  3. INDINAVIR [Suspect]
     Indication: HIV INFECTION
     Dosage: 800MG THREE TIMES PER DAY
     Route: 065
     Dates: start: 19970701, end: 19980701
  4. SAQUINAVIR + RITONAVIR [Suspect]
     Indication: HIV INFECTION
     Dosage: 800MG TWICE PER DAY
     Dates: start: 19980701, end: 20000401
  5. L-CARNITINE [Concomitant]
     Dosage: 5G PER DAY
     Dates: start: 20000601, end: 20010601

REACTIONS (6)
  - FAT TISSUE INCREASED [None]
  - HYPERTROPHY BREAST [None]
  - ILL-DEFINED DISORDER [None]
  - LIPOATROPHY [None]
  - LIPODYSTROPHY ACQUIRED [None]
  - NEPHROLITHIASIS [None]
